FAERS Safety Report 17676613 (Version 1)
Quarter: 2020Q2

REPORT INFORMATION
  Report Type: Spontaneous
  Country: JP (occurrence: JP)
  Receive Date: 20200416
  Receipt Date: 20200416
  Transmission Date: 20200714
  Serious: Yes (Other)
  Sender: FDA-Public Use
  Company Number: JP-BRISTOL-MYERS SQUIBB COMPANY-BMS-2020-009453

PATIENT

DRUGS (1)
  1. OPDIVO [Suspect]
     Active Substance: NIVOLUMAB
     Indication: GASTRIC CANCER
     Dosage: 240 MG, Q2W
     Route: 041
     Dates: start: 201910, end: 202001

REACTIONS (2)
  - Haematotoxicity [Unknown]
  - Haemophagocytic lymphohistiocytosis [Not Recovered/Not Resolved]

NARRATIVE: CASE EVENT DATE: 20200123
